FAERS Safety Report 14921818 (Version 1)
Quarter: 2018Q2

REPORT INFORMATION
  Report Type: Spontaneous
  Country: US (occurrence: US)
  Receive Date: 20180522
  Receipt Date: 20180522
  Transmission Date: 20180711
  Serious: No
  Sender: FDA-Public Use
  Company Number: US-BRISTOL-MYERS SQUIBB COMPANY-BMS-2018-046453

PATIENT
  Sex: Female

DRUGS (4)
  1. COREG CR [Concomitant]
     Active Substance: CARVEDILOL PHOSPHATE
     Indication: BLOOD PRESSURE MEASUREMENT
     Route: 065
  2. COREG CR [Concomitant]
     Active Substance: CARVEDILOL PHOSPHATE
     Indication: HYPERTENSION
     Dosage: 10 MG, QD
     Route: 065
  3. ELIQUIS [Suspect]
     Active Substance: APIXABAN
     Indication: CEREBROVASCULAR ACCIDENT PROPHYLAXIS
     Dosage: 2.5 MG, BID
     Route: 048
     Dates: start: 20180329
  4. CRESTOR [Concomitant]
     Active Substance: ROSUVASTATIN CALCIUM
     Indication: BLOOD CHOLESTEROL
     Dosage: 2.5 MG, QD
     Route: 065

REACTIONS (3)
  - Productive cough [Unknown]
  - Blood glucose increased [Unknown]
  - Abdominal pain upper [Unknown]
